FAERS Safety Report 7870601-7 (Version None)
Quarter: 2011Q3

REPORT INFORMATION
  Report Type: 
  Country: None (occurrence: None)
  Receive Date: 20110922
  Receipt Date: 20101231
  Transmission Date: 20111222
  Serious: Yes (Other)
  Sender: FDA-Public Use
  Company Number: 20110016

PATIENT
  Age: 54 Year
  Sex: Female

DRUGS (4)
  1. SYNTHROID [Concomitant]
  2. PROTONIX [Concomitant]
  3. DEXAMETHASONE SODIUM PHOSPHATE [Suspect]
     Indication: BURSITIS
     Dosage: TWICE WEEKLY
     Dates: start: 20101130, end: 20101201
  4. FLOVENT [Concomitant]

REACTIONS (12)
  - FEELING JITTERY [None]
  - OCULAR HYPERAEMIA [None]
  - MYDRIASIS [None]
  - FEELING ABNORMAL [None]
  - MALAISE [None]
  - ANAPHYLACTIC REACTION [None]
  - INSOMNIA [None]
  - SWELLING [None]
  - LOCAL SWELLING [None]
  - DYSPHAGIA [None]
  - HEAD DISCOMFORT [None]
  - ACNE [None]
